FAERS Safety Report 25057465 (Version 1)
Quarter: 2025Q1

REPORT INFORMATION
  Report Type: Report from Study
  Country: US (occurrence: US)
  Receive Date: 20250310
  Receipt Date: 20250310
  Transmission Date: 20250409
  Serious: Yes (Other)
  Sender: ALEXION PHARMACEUTICALS
  Company Number: US-ASTRAZENECA-202503USA003382US

PATIENT

DRUGS (2)
  1. OLAPARIB [Suspect]
     Active Substance: OLAPARIB
     Indication: Colon cancer
     Dosage: 200 MILLIGRAM, BID
  2. OLAPARIB [Suspect]
     Active Substance: OLAPARIB
     Dosage: 100 MILLIGRAM, BID

REACTIONS (7)
  - Osteogenesis imperfecta [Unknown]
  - Asthenia [Unknown]
  - Drug intolerance [Unknown]
  - Hernia [Unknown]
  - Back disorder [Unknown]
  - Product dose omission issue [Unknown]
  - COVID-19 [Unknown]
